FAERS Safety Report 15112530 (Version 1)
Quarter: 2018Q3

REPORT INFORMATION
  Report Type: Spontaneous
  Country: US (occurrence: US)
  Receive Date: 20180705
  Receipt Date: 20180705
  Transmission Date: 20181010
  Serious: Yes (Other)
  Sender: FDA-Public Use
  Company Number: US-BRACCO-2018US03477

PATIENT
  Sex: Male

DRUGS (2)
  1. MULTIHANCE [Suspect]
     Active Substance: GADOBENATE DIMEGLUMINE
     Indication: NUCLEAR MAGNETIC RESONANCE IMAGING
     Dosage: UNK, SINGLE
  2. OPTIMARK [Suspect]
     Active Substance: GADOVERSETAMIDE
     Indication: NUCLEAR MAGNETIC RESONANCE IMAGING
     Dosage: UNK

REACTIONS (12)
  - Contrast media deposition [Unknown]
  - Gait disturbance [Unknown]
  - Cognitive disorder [Unknown]
  - Urine analysis abnormal [Unknown]
  - Skin fibrosis [Unknown]
  - Pain [Unknown]
  - Burning sensation [Unknown]
  - Fibrosis [Unknown]
  - Skin hypertrophy [Unknown]
  - Injury [Unknown]
  - Balance disorder [Unknown]
  - Skin tightness [Unknown]

NARRATIVE: CASE EVENT DATE: 20170923
